FAERS Safety Report 4918184-5 (Version None)
Quarter: 2006Q1

REPORT INFORMATION
  Report Type: 
  Country: None (occurrence: None)
  Receive Date: 20060113
  Receipt Date: 20051014
  Transmission Date: 20060701
  Serious: No
  Sender: FDA-Public Use
  Company Number: 2005SP003526

PATIENT
  Age: 54 Year
  Sex: Female
  Weight: 81.6475 kg

DRUGS (10)
  1. LUNESTA [Suspect]
     Indication: INSOMNIA
     Dosage: 3 MG; HS; ORAL
     Route: 048
     Dates: start: 20050831, end: 20050831
  2. WELLBUTRIN [Concomitant]
  3. ZOLOFT [Concomitant]
  4. LEVOTHROID [Concomitant]
  5. SIMVASTATIN [Concomitant]
  6. SINGULAIR [Concomitant]
  7. PANTOPRAZOLE [Concomitant]
  8. LISINOPRIL [Concomitant]
  9. FLUTICASONE PROPIONATE W/SALMETEROL [Concomitant]
  10. VIVELLE [Concomitant]

REACTIONS (1)
  - DYSGEUSIA [None]
